FAERS Safety Report 7284235-9 (Version None)
Quarter: 2011Q1

REPORT INFORMATION
  Report Type: 
  Country: None (occurrence: None)
  Receive Date: 20110209
  Receipt Date: 20110203
  Transmission Date: 20110831
  Serious: Yes (Other)
  Sender: FDA-Public Use
  Company Number: BR-US-EMD SERONO, INC.-7040356

PATIENT
  Sex: Female

DRUGS (1)
  1. REBIF [Suspect]
     Indication: RELAPSING-REMITTING MULTIPLE SCLEROSIS
     Dates: start: 20051118, end: 20101215

REACTIONS (4)
  - DEPRESSED MOOD [None]
  - PANIC DISORDER [None]
  - HALLUCINATION, AUDITORY [None]
  - DEPRESSION [None]
